FAERS Safety Report 8089872-X (Version None)
Quarter: 2012Q1

REPORT INFORMATION
  Report Type: 
  Country: None (occurrence: None)
  Receive Date: 20120129
  Receipt Date: 20111017
  Transmission Date: 20120608
  Serious: No
  Sender: FDA-Public Use
  Company Number: US-ABBOTT-11P-163-0866297-00

PATIENT
  Age: 62 Year
  Sex: Male

DRUGS (2)
  1. HUMIRA [Suspect]
     Indication: COLITIS
     Dates: start: 20110901
  2. UNKNOWN MEDICATION [Concomitant]
     Indication: ANXIETY

REACTIONS (2)
  - DIZZINESS [None]
  - HEADACHE [None]
